FAERS Safety Report 5199165-6 (Version None)
Quarter: 2007Q1

REPORT INFORMATION
  Report Type: 
  Country: None (occurrence: None)
  Receive Date: 20070104
  Receipt Date: 20061226
  Transmission Date: 20070707
  Serious: Yes (Hospitalization)
  Sender: FDA-Public Use
  Company Number: FR-PFIZER INC-2006048352

PATIENT
  Sex: Male
  Weight: 79 kg

DRUGS (2)
  1. TAHOR [Suspect]
     Indication: HYPERCHOLESTEROLAEMIA
     Route: 048
     Dates: start: 20020423, end: 20030708
  2. LEVOTHYROXINE SODIUM [Concomitant]
     Route: 048

REACTIONS (2)
  - FEELING DRUNK [None]
  - HOSPITALISATION [None]
